FAERS Safety Report 8238211-X (Version None)
Quarter: 2012Q1

REPORT INFORMATION
  Report Type: 
  Country: None (occurrence: None)
  Receive Date: 20120327
  Receipt Date: 20120319
  Transmission Date: 20120608
  Serious: Yes (Other)
  Sender: FDA-Public Use
  Company Number: JP-ABBOTT-12P-087-0918774-00

PATIENT
  Sex: Male

DRUGS (4)
  1. HALOPERIDOL [Suspect]
     Indication: AUTISM
     Route: 048
     Dates: end: 20111109
  2. HALOPERIDOL [Suspect]
     Indication: INSOMNIA
  3. AKINETON [Suspect]
     Indication: PRODUCT USED FOR UNKNOWN INDICATION
     Route: 048
     Dates: end: 20111109
  4. HALOPERIDOL [Suspect]
     Indication: SELF INJURIOUS BEHAVIOUR

REACTIONS (2)
  - OESOPHAGEAL ACHALASIA [None]
  - URINARY RETENTION [None]
